FAERS Safety Report 25316560 (Version 1)
Quarter: 2025Q2

REPORT INFORMATION
  Report Type: Spontaneous
  Country: US (occurrence: US)
  Receive Date: 20250515
  Receipt Date: 20250515
  Transmission Date: 20250717
  Serious: Yes (Disabling, Other)
  Sender: SPECGX
  Company Number: US-SPECGX-T202500908

PATIENT
  Sex: Male

DRUGS (2)
  1. METHADONE [Suspect]
     Active Substance: METHADONE HYDROCHLORIDE
     Indication: Drug withdrawal maintenance therapy
     Route: 065
  2. BUPRENORPHINE [Suspect]
     Active Substance: BUPRENORPHINE
     Indication: Drug withdrawal maintenance therapy
     Route: 065

REACTIONS (3)
  - Imprisonment [Unknown]
  - Substance use [Unknown]
  - Drug withdrawal syndrome [Unknown]
